FAERS Safety Report 7457463-7 (Version None)
Quarter: 2011Q2

REPORT INFORMATION
  Report Type: 
  Country: None (occurrence: None)
  Receive Date: 20110503
  Receipt Date: 20110503
  Transmission Date: 20111010
  Serious: No
  Sender: FDA-Public Use
  Company Number: None

PATIENT
  Age: 39 Year
  Sex: Female

DRUGS (1)
  1. TORADOL [Suspect]
     Dosage: 60MG ONCE IM
     Route: 030
     Dates: start: 20110121, end: 20110501

REACTIONS (1)
  - PRURITUS [None]
